FAERS Safety Report 4290428-5 (Version None)
Quarter: 2004Q1

REPORT INFORMATION
  Report Type: 
  Country: None (occurrence: None)
  Receive Date: 20040209
  Receipt Date: 20040122
  Transmission Date: 20041129
  Serious: Yes (Hospitalization)
  Sender: FDA-Public Use
  Company Number: DSA_23807_2004

PATIENT
  Age: 27 Year
  Sex: Male

DRUGS (3)
  1. TAVOR [Suspect]
     Dates: start: 20040103, end: 20040103
  2. GEODON [Suspect]
     Dates: start: 20040103, end: 20040103
  3. ZYPREXA [Suspect]
     Dates: start: 20040103, end: 20040103

REACTIONS (4)
  - BLOOD CREATINE PHOSPHOKINASE INCREASED [None]
  - FATIGUE [None]
  - GAMMA-GLUTAMYLTRANSFERASE INCREASED [None]
  - INTENTIONAL OVERDOSE [None]
